FAERS Safety Report 4960455-0 (Version None)
Quarter: 2006Q2

REPORT INFORMATION
  Report Type: 
  Country: None (occurrence: None)
  Receive Date: 20060403
  Receipt Date: 20060330
  Transmission Date: 20061013
  Serious: Yes (Other)
  Sender: FDA-Public Use
  Company Number: CA-GLAXOSMITHKLINE-A0599959A

PATIENT
  Sex: Male

DRUGS (11)
  1. PAXIL [Suspect]
     Indication: ANTIDEPRESSANT THERAPY
     Route: 048
     Dates: start: 19990101, end: 20060101
  2. PAROXETINE HYDROCHLORIDE [Suspect]
     Indication: ANTIDEPRESSANT THERAPY
     Dosage: 20MG PER DAY
     Route: 048
     Dates: end: 20060101
  3. COUMADIN [Concomitant]
     Indication: CARDIAC PACEMAKER INSERTION
  4. SYNTHROID [Concomitant]
     Indication: THYROID DISORDER
  5. ANDROGEL [Concomitant]
     Indication: ANDROGEN DEFICIENCY
  6. AVALIDE [Concomitant]
     Indication: HYPERTENSION
  7. ADALAT [Concomitant]
     Indication: HYPERTENSION
  8. HYDROCHLOROTHIAZIDE [Concomitant]
     Indication: HYPERTENSION
  9. OXYCONTIN [Concomitant]
     Indication: PAIN
     Dosage: 240MG THREE TIMES PER DAY
  10. M-ESLON [Concomitant]
     Indication: PAIN
     Dosage: 100MG THREE TIMES PER DAY
  11. TYLENOL W/ CODEINE NO. 4 [Concomitant]
     Indication: PAIN

REACTIONS (46)
  - ABDOMINAL DISCOMFORT [None]
  - ABDOMINAL PAIN [None]
  - ABNORMAL DREAMS [None]
  - ANGER [None]
  - ANOREXIA [None]
  - ANXIETY [None]
  - BRUXISM [None]
  - CHEST PAIN [None]
  - CHILLS [None]
  - CONFUSIONAL STATE [None]
  - COORDINATION ABNORMAL [None]
  - CRYING [None]
  - DIARRHOEA [None]
  - DISTURBANCE IN ATTENTION [None]
  - DIZZINESS [None]
  - DRUG DEPENDENCE [None]
  - DRUG WITHDRAWAL SYNDROME [None]
  - EMOTIONAL DISORDER [None]
  - FATIGUE [None]
  - FEELING ABNORMAL [None]
  - GAIT DISTURBANCE [None]
  - HAEMATOCHEZIA [None]
  - HEADACHE [None]
  - HOT FLUSH [None]
  - HYPERACUSIS [None]
  - HYPERHIDROSIS [None]
  - IMPAIRED DRIVING ABILITY [None]
  - INFLUENZA [None]
  - INNER EAR DISORDER [None]
  - INSOMNIA [None]
  - MEMORY IMPAIRMENT [None]
  - MOOD SWINGS [None]
  - MOVEMENT DISORDER [None]
  - NAUSEA [None]
  - PANIC ATTACK [None]
  - PARAESTHESIA [None]
  - PAROSMIA [None]
  - PSYCHIATRIC SYMPTOM [None]
  - PYREXIA [None]
  - SKIN EXFOLIATION [None]
  - SUICIDAL IDEATION [None]
  - THINKING ABNORMAL [None]
  - TINNITUS [None]
  - TOOTH FRACTURE [None]
  - VERTIGO [None]
  - VOMITING [None]
